FAERS Safety Report 5360099-5 (Version None)
Quarter: 2007Q2

REPORT INFORMATION
  Report Type: 
  Country: None (occurrence: None)
  Receive Date: 20070614
  Receipt Date: 20070612
  Transmission Date: 20071010
  Serious: Yes (Life-Threatening, Hospitalization)
  Sender: FDA-Public Use
  Company Number: 2007S1004796

PATIENT
  Age: 8 Month
  Sex: Female

DRUGS (1)
  1. FENTANYL TRANSDERMAL SYSTEM [Suspect]
     Dosage: ; TRANSDERMAL
     Route: 062

REACTIONS (6)
  - ACCIDENTAL DRUG INTAKE BY CHILD [None]
  - CONVULSION [None]
  - DRUG TOXICITY [None]
  - LOSS OF CONSCIOUSNESS [None]
  - MIOSIS [None]
  - SOMNOLENCE [None]
